FAERS Safety Report 12267378 (Version 7)
Quarter: 2018Q4

REPORT INFORMATION
  Report Type: Spontaneous
  Country: CA (occurrence: CA)
  Receive Date: 20160414
  Receipt Date: 20181030
  Transmission Date: 20190204
  Serious: Yes (Other)
  Sender: FDA-Public Use
  Company Number: CA-ROCHE-1741123

PATIENT
  Age: 49 Year
  Sex: Female

DRUGS (4)
  1. XOLAIR [Suspect]
     Active Substance: OMALIZUMAB
     Route: 058
     Dates: start: 20180205
  2. XOLAIR [Suspect]
     Active Substance: OMALIZUMAB
     Indication: ASTHMA
     Route: 058
     Dates: start: 20130820
  3. XOLAIR [Suspect]
     Active Substance: OMALIZUMAB
     Route: 058
     Dates: start: 20180924
  4. XOLAIR [Suspect]
     Active Substance: OMALIZUMAB
     Route: 058
     Dates: start: 20180108

REACTIONS (10)
  - Hypersensitivity [Unknown]
  - Respiratory tract infection [Unknown]
  - Skin papilloma [Unknown]
  - Sleep apnoea syndrome [Unknown]
  - Blood pressure systolic increased [Unknown]
  - Type 2 diabetes mellitus [Unknown]
  - Back pain [Unknown]
  - Plantar fasciitis [Unknown]
  - Diverticulitis [Unknown]
  - Rhinorrhoea [Unknown]

NARRATIVE: CASE EVENT DATE: 201612
